FAERS Safety Report 7674135-4 (Version None)
Quarter: 2011Q3

REPORT INFORMATION
  Report Type: 
  Country: None (occurrence: None)
  Receive Date: 20110810
  Receipt Date: 20110727
  Transmission Date: 20111222
  Serious: Yes (Hospitalization)
  Sender: FDA-Public Use
  Company Number: US-ELI_LILLY_AND_COMPANY-US201106008217

PATIENT
  Sex: Female

DRUGS (4)
  1. OMEPRAZOLE [Concomitant]
  2. FORTEO [Suspect]
     Indication: OSTEOPOROSIS
     Dosage: 20 UG, QD
     Route: 065
     Dates: start: 20100713
  3. CRESTOR [Concomitant]
  4. ASPIRIN [Concomitant]
     Dosage: 81 MG, QD
     Route: 065

REACTIONS (3)
  - RIGHT VENTRICULAR DYSFUNCTION [None]
  - CHOLELITHIASIS [None]
  - LEFT VENTRICULAR DYSFUNCTION [None]
